FAERS Safety Report 24870017 (Version 1)
Quarter: 2025Q1

REPORT INFORMATION
  Report Type: Spontaneous
  Country: US (occurrence: None)
  Receive Date: 20250117
  Receipt Date: 20250117
  Transmission Date: 20250409
  Serious: Yes (Other)
  Sender: FDA-CTU
  Company Number: None

PATIENT
  Age: 69 Year
  Sex: Female
  Weight: 72.57 kg

DRUGS (1)
  1. REGADENOSON [Suspect]
     Active Substance: REGADENOSON

REACTIONS (12)
  - Feeling hot [None]
  - Sensory disturbance [None]
  - Feeling abnormal [None]
  - Dizziness [None]
  - Hyperhidrosis [None]
  - Dyspnoea [None]
  - Nausea [None]
  - Somnolence [None]
  - Headache [None]
  - Vomiting [None]
  - Blood pressure increased [None]
  - Fatigue [None]

NARRATIVE: CASE EVENT DATE: 20250116
